FAERS Safety Report 5306591-0 (Version None)
Quarter: 2007Q2

REPORT INFORMATION
  Report Type: 
  Country: None (occurrence: None)
  Receive Date: 20070424
  Receipt Date: 20070413
  Transmission Date: 20071010
  Serious: Yes (Hospitalization)
  Sender: FDA-Public Use
  Company Number: KR-PFIZER INC-2006040686

PATIENT
  Sex: Female
  Weight: 66 kg

DRUGS (10)
  1. SU-011,248 [Suspect]
     Indication: GASTRIC CANCER
     Route: 048
     Dates: start: 20060215, end: 20060313
  2. OXYCODONE HCL [Concomitant]
     Indication: DISCOMFORT
     Route: 048
  3. MEDILAC-S [Concomitant]
     Indication: ABDOMINAL DISTENSION
     Dosage: TEXT:1 CAPSULE
     Route: 048
     Dates: start: 20060316, end: 20060316
  4. ITOPRIDE [Concomitant]
     Indication: ABDOMINAL DISTENSION
     Route: 048
     Dates: start: 20060316, end: 20060316
  5. IBUPROFEN [Concomitant]
     Indication: LOCAL SWELLING
     Dosage: TEXT:6 TABLETS
     Route: 048
     Dates: start: 20060317, end: 20060320
  6. ARGININE [Concomitant]
     Route: 048
     Dates: start: 20060317, end: 20060320
  7. OFLOXACIN [Concomitant]
     Indication: LACRIMATION INCREASED
     Dates: start: 20060317, end: 20060317
  8. CIPROFLOXACIN [Concomitant]
     Indication: PROPHYLAXIS
     Route: 048
     Dates: start: 20060318, end: 20060320
  9. FUROSEMIDE [Concomitant]
     Indication: LOCAL SWELLING
     Route: 048
     Dates: start: 20060318, end: 20060319
  10. SUCRALFATE [Concomitant]
     Indication: DYSPEPSIA
     Dosage: TEXT:ONE PACK
     Route: 048
     Dates: start: 20060319, end: 20060319

REACTIONS (1)
  - PERITONITIS [None]
